FAERS Safety Report 26069515 (Version 1)
Quarter: 2025Q4

REPORT INFORMATION
  Report Type: Spontaneous
  Country: EU (occurrence: EU)
  Receive Date: 20251120
  Receipt Date: 20251120
  Transmission Date: 20260117
  Serious: Yes (Other)
  Sender: RANBAXY
  Company Number: EU-AEMPS-1735961

PATIENT
  Age: 28 Year
  Sex: Male
  Weight: 69 kg

DRUGS (2)
  1. ACETAMINOPHEN [Suspect]
     Active Substance: ACETAMINOPHEN
     Indication: Arthralgia
     Dosage: 1 GRAM, IN TOTAL
     Route: 048
     Dates: start: 20250719
  2. DEXKETOPROFEN TROMETAMOL [Suspect]
     Active Substance: DEXKETOPROFEN TROMETAMOL
     Indication: Arthralgia
     Dosage: TABLET OF 25 MG EVERY 8 HOURS IN COMBINATION WITH IBUPROFEN FOR A PERIOD OF 7 DAYS.
     Route: 048
     Dates: start: 20250719, end: 20250719

REACTIONS (3)
  - Angioedema [Recovered/Resolved]
  - Eye pruritus [Recovered/Resolved]
  - Rhinitis [Recovered/Resolved]

NARRATIVE: CASE EVENT DATE: 20250719
